FAERS Safety Report 14007177 (Version 3)
Quarter: 2018Q2

REPORT INFORMATION
  Report Type: Spontaneous
  Country: FR (occurrence: FR)
  Receive Date: 20170925
  Receipt Date: 20180508
  Transmission Date: 20180711
  Serious: Yes (Other)
  Sender: FDA-Public Use
  Company Number: FR-MERCK KGAA-2027522

PATIENT
  Age: 70 Year
  Sex: Female

DRUGS (5)
  1. IMOVANE [Concomitant]
     Active Substance: ZOPICLONE
  2. XANAX [Concomitant]
     Active Substance: ALPRAZOLAM
  3. FORADIL [Concomitant]
     Active Substance: FORMOTEROL FUMARATE
  4. DEROXAT (PAROXETINE HYDROCHLORIDE) [Concomitant]
  5. NOVOTHYROX [Suspect]
     Active Substance: LEVOTHYROXINE SODIUM
     Indication: HYPOTHYROIDISM
     Route: 048
     Dates: start: 201703

REACTIONS (36)
  - Dizziness [None]
  - Affective disorder [None]
  - Fatigue [Not Recovered/Not Resolved]
  - Dyspnoea [Not Recovered/Not Resolved]
  - Nausea [Not Recovered/Not Resolved]
  - Asphyxia [None]
  - Cough [None]
  - Hypertension [None]
  - Muscle spasms [None]
  - Alopecia [Not Recovered/Not Resolved]
  - Tongue disorder [None]
  - Respiratory failure [None]
  - Social avoidant behaviour [None]
  - Loss of personal independence in daily activities [None]
  - Pain [None]
  - Serum ferritin increased [None]
  - Arthralgia [Not Recovered/Not Resolved]
  - Decreased appetite [Not Recovered/Not Resolved]
  - Anger [Not Recovered/Not Resolved]
  - Irritability [None]
  - Feeling abnormal [None]
  - Gamma-glutamyltransferase increased [None]
  - Nervousness [Not Recovered/Not Resolved]
  - Hyperhidrosis [Not Recovered/Not Resolved]
  - Blood thyroid stimulating hormone normal [Recovered/Resolved]
  - Nightmare [None]
  - Visual impairment [Not Recovered/Not Resolved]
  - Weight increased [Not Recovered/Not Resolved]
  - Headache [Not Recovered/Not Resolved]
  - Myalgia [Not Recovered/Not Resolved]
  - Insomnia [Not Recovered/Not Resolved]
  - Product formulation issue [Not Recovered/Not Resolved]
  - Influenza like illness [None]
  - Depression [None]
  - Abdominal pain upper [None]
  - Personal relationship issue [None]

NARRATIVE: CASE EVENT DATE: 201704
